FAERS Safety Report 9542065 (Version 1)
Quarter: 2013Q3

REPORT INFORMATION
  Report Type: Spontaneous
  Country: NL (occurrence: NL)
  Receive Date: 20130923
  Receipt Date: 20130923
  Transmission Date: 20140515
  Serious: Yes (Disabling)
  Sender: FDA-Public Use
  Company Number: NL-IPSEN BIOPHARMACEUTICALS, INC.-2013-4133

PATIENT
  Sex: Female

DRUGS (2)
  1. SOMATULINE AUTOSOLUTION 60MG [Suspect]
     Indication: CYSTOID MACULAR OEDEMA
     Route: 058
     Dates: start: 20130206
  2. SOMATULINE AUTOSOLUTION 60MG [Suspect]
     Indication: OFF LABEL USE

REACTIONS (1)
  - Visual acuity reduced [Not Recovered/Not Resolved]
